FAERS Safety Report 7044485-3 (Version None)
Quarter: 2010Q4

REPORT INFORMATION
  Report Type: 
  Country: None (occurrence: None)
  Receive Date: 20101014
  Receipt Date: 20101003
  Transmission Date: 20110411
  Serious: Yes (Other)
  Sender: FDA-Public Use
  Company Number: US-US-EMD SERONO, INC.-7000026

PATIENT
  Sex: Female

DRUGS (4)
  1. REBIF [Suspect]
     Indication: MULTIPLE SCLEROSIS
     Route: 058
     Dates: start: 20081114, end: 20100101
  2. REBIF [Suspect]
     Route: 058
     Dates: start: 20100101
  3. TYLENOL [Concomitant]
     Indication: PREMEDICATION
  4. IBUPROFEN [Concomitant]
     Indication: PREMEDICATION

REACTIONS (4)
  - FALL [None]
  - INJECTION SITE REACTION [None]
  - OPTIC NEURITIS [None]
  - UPPER LIMB FRACTURE [None]
